FAERS Safety Report 6005999-8 (Version None)
Quarter: 2008Q4

REPORT INFORMATION
  Report Type: 
  Country: None (occurrence: None)
  Receive Date: 20081215
  Receipt Date: 20081203
  Transmission Date: 20090506
  Serious: Yes (Death)
  Sender: FDA-Public Use
  Company Number: GXKR2008AU11562

PATIENT
  Age: 69 Year
  Sex: Male

DRUGS (9)
  1. MITOXANTRONE [Suspect]
     Indication: NON-HODGKIN'S LYMPHOMA
  2. ETOPOSIDE [Suspect]
     Indication: NON-HODGKIN'S LYMPHOMA
  3. VINCRISTINE [Suspect]
     Indication: NON-HODGKIN'S LYMPHOMA
  4. PREDNISOLONE [Suspect]
     Indication: NON-HODGKIN'S LYMPHOMA
  5. RITUXIMAB (RITUXIMAB) [Suspect]
     Indication: NON-HODGKIN'S LYMPHOMA
  6. CYCLOPHOSPHAMIDE [Suspect]
     Indication: NON-HODGKIN'S LYMPHOMA
     Dates: end: 20050101
  7. WARFARIN SODIUM [Concomitant]
  8. CANDESARTAN CILEXETIL [Concomitant]
  9. OMEPRAZOLE [Concomitant]

REACTIONS (18)
  - ACALCULIA [None]
  - ACID-BASE BALANCE DISORDER MIXED [None]
  - ANAEMIA [None]
  - BRAIN OEDEMA [None]
  - BRAIN SCAN ABNORMAL [None]
  - CONTINUOUS HAEMODIAFILTRATION [None]
  - DEPRESSED LEVEL OF CONSCIOUSNESS [None]
  - DYSPHASIA [None]
  - FLUID OVERLOAD [None]
  - HAEMODIALYSIS [None]
  - HEPATIC FUNCTION ABNORMAL [None]
  - HYPERAMMONAEMIC ENCEPHALOPATHY [None]
  - INCOHERENT [None]
  - METABOLIC ACIDOSIS [None]
  - NECROSIS [None]
  - NORMOCHROMIC NORMOCYTIC ANAEMIA [None]
  - PARTIAL SEIZURES [None]
  - RESPIRATORY ALKALOSIS [None]
